FAERS Safety Report 6865009-7 (Version None)
Quarter: 2010Q3

REPORT INFORMATION
  Report Type: 
  Country: None (occurrence: None)
  Receive Date: 20100721
  Receipt Date: 20080408
  Transmission Date: 20110219
  Serious: No
  Sender: FDA-Public Use
  Company Number: US-PFIZER INC-2008032708

PATIENT
  Sex: Female

DRUGS (1)
  1. CHANTIX [Suspect]
     Dates: start: 20080101

REACTIONS (5)
  - ANXIETY [None]
  - DIZZINESS [None]
  - DRUG DOSE OMISSION [None]
  - FEELING ABNORMAL [None]
  - TREMOR [None]
